FAERS Safety Report 24462108 (Version 1)
Quarter: 2024Q4

REPORT INFORMATION
  Report Type: Report from Study
  Country: HR (occurrence: HR)
  Receive Date: 20241018
  Receipt Date: 20241018
  Transmission Date: 20250114
  Serious: No
  Sender: ROCHE
  Company Number: HR-ROCHE-3559683

PATIENT
  Sex: Male

DRUGS (2)
  1. MABTHERA [Suspect]
     Active Substance: RITUXIMAB
     Indication: Hairy cell leukaemia
     Dosage: OVER 4 WEEKS
     Route: 041
  2. CLADRIBINE [Concomitant]
     Active Substance: CLADRIBINE

REACTIONS (2)
  - Off label use [Unknown]
  - No adverse event [Unknown]
